FAERS Safety Report 25019232 (Version 1)
Quarter: 2025Q1

REPORT INFORMATION
  Report Type: Report from Study
  Country: CA (occurrence: CA)
  Receive Date: 20250227
  Receipt Date: 20250227
  Transmission Date: 20250409
  Serious: Yes (Hospitalization)
  Sender: BOEHRINGER INGELHEIM
  Company Number: CA-BoehringerIngelheim-2025-BI-007675

PATIENT
  Age: 55 Year
  Sex: Male

DRUGS (1)
  1. OFEV [Suspect]
     Active Substance: NINTEDANIB
     Indication: Interstitial lung disease

REACTIONS (5)
  - Intestinal perforation [Recovering/Resolving]
  - Sepsis [Recovering/Resolving]
  - Diarrhoea [Recovered/Resolved]
  - Dizziness [Recovered/Resolved]
  - Headache [Not Recovered/Not Resolved]
